FAERS Safety Report 16123988 (Version 1)
Quarter: 2019Q1

REPORT INFORMATION
  Report Type: Spontaneous
  Country: US (occurrence: US)
  Receive Date: 20190327
  Receipt Date: 20190327
  Transmission Date: 20190418
  Serious: Yes (Other)
  Sender: FDA-Public Use
  Company Number: US-AMREGENT-20190573

PATIENT

DRUGS (1)
  1. INJECTAFER [Suspect]
     Active Substance: FERRIC CARBOXYMALTOSE
     Dosage: UNKNOWN
     Route: 041

REACTIONS (10)
  - Disorientation [Recovered/Resolved]
  - Confusional state [Unknown]
  - Adverse event [Recovering/Resolving]
  - Hypoaesthesia [Unknown]
  - Headache [Unknown]
  - Pain [Recovered/Resolved]
  - Gastrointestinal haemorrhage [Unknown]
  - Feeling abnormal [Recovered/Resolved]
  - Visual impairment [Unknown]
  - Nausea [Recovering/Resolving]
